FAERS Safety Report 16646781 (Version 1)
Quarter: 2019Q3

REPORT INFORMATION
  Report Type: Spontaneous
  Country: JP (occurrence: JP)
  Receive Date: 20190730
  Receipt Date: 20190730
  Transmission Date: 20191004
  Serious: Yes (Other)
  Sender: FDA-Public Use
  Company Number: JP-PFIZER INC-2019182903

PATIENT
  Sex: Female

DRUGS (5)
  1. LYRICA [Suspect]
     Active Substance: PREGABALIN
     Indication: PAIN
     Dosage: 250 MG, DAILY (25MG, 3 TABLETS IN MORNING, 2 TABLETS AT NOON AND EVENING, 3 TABLETS BEFORE BEDTIME)
  2. LYRICA [Suspect]
     Active Substance: PREGABALIN
     Indication: HYPOAESTHESIA
     Dosage: 150 MG, DAILY (25MG, 2 TABLETS IN THE MORNING, 1 TABLET AT NOON AND EVENING, 2 TABLETS BEFORE BED)
     Dates: start: 2018
  3. LYRICA [Suspect]
     Active Substance: PREGABALIN
     Indication: CARPAL TUNNEL SYNDROME
  4. LYRICA [Suspect]
     Active Substance: PREGABALIN
     Indication: RHEUMATIC DISORDER
  5. ACTEMRA [Suspect]
     Active Substance: TOCILIZUMAB
     Dosage: UNK

REACTIONS (14)
  - Drug ineffective [Unknown]
  - Insomnia [Unknown]
  - C-reactive protein abnormal [Unknown]
  - Matrix metalloproteinase-3 [Unknown]
  - Seronegative arthritis [Unknown]
  - Disease recurrence [Unknown]
  - Dizziness [Unknown]
  - Anxiety [Unknown]
  - Off label use [Unknown]
  - Weight increased [Recovered/Resolved]
  - Malaise [Unknown]
  - Depressed mood [Unknown]
  - Musculoskeletal stiffness [Unknown]
  - Oedema peripheral [Unknown]
